FAERS Safety Report 9869035 (Version 1)
Quarter: 2014Q1

REPORT INFORMATION
  Report Type: Spontaneous
  Country: CA (occurrence: CA)
  Receive Date: 20140205
  Receipt Date: 20140205
  Transmission Date: 20141002
  Serious: Yes (Other)
  Sender: FDA-Public Use
  Company Number: CA-AMGEN-CANSP2014007430

PATIENT
  Age: 57 Year
  Sex: Male

DRUGS (5)
  1. ENBREL [Suspect]
     Indication: RHEUMATOID ARTHRITIS
     Dosage: 50 MG, UNK
     Route: 065
     Dates: start: 20130617
  2. FOLIC ACID [Concomitant]
     Dosage: UNK
  3. LIPITOR [Concomitant]
     Dosage: UNK
  4. MTX                                /00113801/ [Concomitant]
     Dosage: UNK
  5. CORTISONE [Concomitant]
     Dosage: UNK

REACTIONS (1)
  - Throat cancer [Not Recovered/Not Resolved]
